FAERS Safety Report 5698223-7 (Version None)
Quarter: 2008Q2

REPORT INFORMATION
  Report Type: 
  Country: None (occurrence: None)
  Receive Date: 20080408
  Receipt Date: 20080327
  Transmission Date: 20081010
  Serious: Yes (Other)
  Sender: FDA-Public Use
  Company Number: US-PFIZER INC-2008022785

PATIENT
  Sex: Female
  Weight: 93.181 kg

DRUGS (6)
  1. NARDIL [Suspect]
     Indication: BORDERLINE PERSONALITY DISORDER
     Route: 048
  2. NARDIL [Suspect]
     Indication: POST-TRAUMATIC STRESS DISORDER
  3. DEPAKOTE [Concomitant]
  4. METOPROLOL TARTRATE [Concomitant]
  5. ANXIOLYTICS [Concomitant]
  6. XANAX [Concomitant]
     Dosage: TEXT:4 DF-FREQ:DAILY

REACTIONS (5)
  - DRUG INEFFECTIVE [None]
  - FEELING ABNORMAL [None]
  - MEMORY IMPAIRMENT [None]
  - SUICIDAL IDEATION [None]
  - WEIGHT INCREASED [None]
